FAERS Safety Report 12677004 (Version 1)
Quarter: 2016Q3

REPORT INFORMATION
  Report Type: Spontaneous
  Country: GB (occurrence: GB)
  Receive Date: 20160823
  Receipt Date: 20160823
  Transmission Date: 20161109
  Serious: Yes (Other)
  Sender: FDA-Public Use
  Company Number: GB-TEVA-684903ACC

PATIENT
  Age: 33 Year
  Sex: Female
  Weight: 140 kg

DRUGS (3)
  1. NORETHISTERONE [Concomitant]
     Active Substance: NORETHINDRONE
  2. METFORMIN [Suspect]
     Active Substance: METFORMIN HYDROCHLORIDE
     Indication: DIABETES MELLITUS
     Dosage: 1500 MILLIGRAM DAILY;
     Route: 048
     Dates: start: 20160330, end: 20160713
  3. BOLAMYN SR [Suspect]
     Active Substance: METFORMIN HYDROCHLORIDE
     Indication: DIABETES MELLITUS
     Dosage: 500MG IN MORNING, 1000MG AT TEA TIME
     Route: 048
     Dates: start: 20160713, end: 20160719

REACTIONS (4)
  - Dyspnoea [Unknown]
  - Headache [Unknown]
  - Blood pressure increased [Recovered/Resolved with Sequelae]
  - Chest pain [Unknown]
